FAERS Safety Report 25755111 (Version 1)
Quarter: 2025Q3

REPORT INFORMATION
  Report Type: Spontaneous
  Country: US (occurrence: US)
  Receive Date: 20250903
  Receipt Date: 20250903
  Transmission Date: 20251021
  Serious: No
  Sender: pharmaAND
  Company Number: US-Pharmaand-2025000607

PATIENT
  Age: 79 Year
  Sex: Female

DRUGS (1)
  1. PEGASYS [Suspect]
     Active Substance: PEGINTERFERON ALFA-2A
     Indication: Polycythaemia vera
     Route: 058

REACTIONS (7)
  - Cough [Not Recovered/Not Resolved]
  - Irritability [Not Recovered/Not Resolved]
  - Off label use [Recovered/Resolved]
  - Polycythaemia vera [Recovered/Resolved]
  - Inappropriate schedule of product administration [Recovered/Resolved]
  - Product temperature excursion issue [Recovered/Resolved]
  - Needle issue [Recovered/Resolved]
